FAERS Safety Report 14569157 (Version 1)
Quarter: 2018Q1

REPORT INFORMATION
  Report Type: Spontaneous
  Country: US (occurrence: US)
  Receive Date: 20180223
  Receipt Date: 20180223
  Transmission Date: 20180509
  Serious: Yes (Other)
  Sender: FDA-Public Use
  Company Number: None

PATIENT
  Age: 53 Year
  Sex: Female
  Weight: 59.85 kg

DRUGS (2)
  1. PAROXETINE 40MG TABLETS [Suspect]
     Active Substance: PAROXETINE
     Indication: DEPRESSION
     Dosage: ?          QUANTITY:60 TABLET(S);?
     Route: 048
     Dates: start: 20170812, end: 20171223
  2. HYDROCODONE/ACETAMINOPHEN [Concomitant]
     Active Substance: ACETAMINOPHEN\HYDROCODONE

REACTIONS (12)
  - Anxiety [None]
  - Impaired driving ability [None]
  - Vertigo [None]
  - Disturbance in attention [None]
  - Deafness [None]
  - Insomnia [None]
  - Confusional state [None]
  - Heart rate increased [None]
  - Bradyphrenia [None]
  - Memory impairment [None]
  - Panic attack [None]
  - Tinnitus [None]

NARRATIVE: CASE EVENT DATE: 20180213
